FAERS Safety Report 24775395 (Version 2)
Quarter: 2025Q3

REPORT INFORMATION
  Report Type: Report from Study
  Country: EU (occurrence: EU)
  Receive Date: 20241226
  Receipt Date: 20250723
  Transmission Date: 20251021
  Serious: Yes (Death, Hospitalization, Other)
  Sender: BAXTER
  Company Number: EU-BAXTER-2024BAX028882

PATIENT
  Age: 50 Year
  Sex: Male

DRUGS (15)
  1. CYCLOPHOSPHAMIDE [Suspect]
     Active Substance: CYCLOPHOSPHAMIDE
     Indication: Lymphodepletion
     Route: 065
     Dates: start: 20240904
  2. CYCLOPHOSPHAMIDE [Suspect]
     Active Substance: CYCLOPHOSPHAMIDE
     Route: 065
     Dates: start: 20240905
  3. CYCLOPHOSPHAMIDE [Suspect]
     Active Substance: CYCLOPHOSPHAMIDE
     Route: 065
     Dates: start: 20240906
  4. FLUDARABINE [Suspect]
     Active Substance: FLUDARABINE PHOSPHATE
     Indication: Lymphodepletion
     Route: 065
     Dates: start: 20240904
  5. FLUDARABINE [Suspect]
     Active Substance: FLUDARABINE PHOSPHATE
     Route: 065
     Dates: start: 20240905
  6. FLUDARABINE [Suspect]
     Active Substance: FLUDARABINE PHOSPHATE
     Route: 065
     Dates: start: 20240906
  7. ALEMTUZUMAB [Suspect]
     Active Substance: ALEMTUZUMAB
     Indication: Lymphodepletion
     Route: 065
     Dates: start: 20240904
  8. ALEMTUZUMAB [Suspect]
     Active Substance: ALEMTUZUMAB
     Route: 065
     Dates: start: 20240905
  9. ALEMTUZUMAB [Suspect]
     Active Substance: ALEMTUZUMAB
     Route: 065
     Dates: start: 20240906
  10. MAGNESIUM [Concomitant]
     Active Substance: MAGNESIUM
     Route: 065
  11. ACYCLOVIR [Concomitant]
     Active Substance: ACYCLOVIR
     Route: 065
  12. COTRIMOXAZOLE [Concomitant]
     Active Substance: SULFAMETHOXAZOLE\TRIMETHOPRIM
     Route: 065
  13. LETERMOVIR [Concomitant]
     Active Substance: LETERMOVIR
     Route: 065
  14. ENOXAPARIN [Concomitant]
     Active Substance: ENOXAPARIN
     Route: 065
  15. OMEPRAZOLE [Concomitant]
     Active Substance: OMEPRAZOLE
     Route: 065

REACTIONS (5)
  - Pseudomonas infection [Fatal]
  - Acute graft versus host disease in skin [Recovered/Resolved]
  - Pneumonia pseudomonal [Recovered/Resolved]
  - Septic shock [Recovered/Resolved]
  - Bone marrow failure [Not Recovered/Not Resolved]

NARRATIVE: CASE EVENT DATE: 20240927
